FAERS Safety Report 18932994 (Version 2)
Quarter: 2021Q1

REPORT INFORMATION
  Report Type: Report from Study
  Country: US (occurrence: US)
  Receive Date: 20210224
  Receipt Date: 20210225
  Transmission Date: 20210420
  Serious: Yes (Death)
  Sender: FDA-Public Use
  Company Number: US-PFIZER INC-2021179158

PATIENT

DRUGS (4)
  1. VINCRISTINE SULFATE. [Suspect]
     Active Substance: VINCRISTINE SULFATE
     Indication: SMALL CELL LUNG CANCER LIMITED STAGE
     Dosage: 1.2 MG/M2 ON DAY 1 (MAXIMUM DOSE, 2.0 MG)
  2. ETOPOSIDE. [Suspect]
     Active Substance: ETOPOSIDE
     Indication: SMALL CELL LUNG CANCER LIMITED STAGE
     Dosage: 60 MG/M2 ON DAY 1,2,3
  3. DOXORUBICIN HCL [Suspect]
     Active Substance: DOXORUBICIN HYDROCHLORIDE
     Indication: SMALL CELL LUNG CANCER LIMITED STAGE
     Dosage: 40 MG/M2 ON DAY 1
  4. CYCLOPHOSPHAMIDE. [Suspect]
     Active Substance: CYCLOPHOSPHAMIDE
     Indication: SMALL CELL LUNG CANCER LIMITED STAGE
     Dosage: 500 MG/M2, ON DAY 1

REACTIONS (1)
  - Respiratory failure [Fatal]
